FAERS Safety Report 8992209 (Version 2)
Quarter: 2013Q1

REPORT INFORMATION
  Report Type: Report from Study
  Country: CA (occurrence: CA)
  Receive Date: 20121231
  Receipt Date: 20130109
  Transmission Date: 20140127
  Serious: Yes (Hospitalization)
  Sender: FDA-Public Use
  Company Number: CA-JNJFOC-20121209630

PATIENT
  Age: 23 Year
  Sex: Male
  Weight: 68 kg

DRUGS (2)
  1. REMICADE [Suspect]
     Indication: COLITIS ULCERATIVE
     Route: 042
     Dates: start: 20110225
  2. UNKNOWN MEDICATION [Concomitant]
     Indication: EPILEPSY
     Dosage: STILL TITRATING DOSE
     Route: 065

REACTIONS (1)
  - Epilepsy [Recovered/Resolved]
